FAERS Safety Report 16223449 (Version 3)
Quarter: 2019Q2

REPORT INFORMATION
  Report Type: Spontaneous
  Country: US (occurrence: US)
  Receive Date: 20190422
  Receipt Date: 20190515
  Transmission Date: 20190711
  Serious: No
  Sender: FDA-Public Use
  Company Number: US-SA-2019SA110980

PATIENT
  Sex: Female

DRUGS (1)
  1. CEREZYME [Suspect]
     Active Substance: IMIGLUCERASE
     Route: 041

REACTIONS (5)
  - Bone pain [Not Recovered/Not Resolved]
  - Arthralgia [Unknown]
  - Neoplasm [Not Recovered/Not Resolved]
  - Myalgia [Not Recovered/Not Resolved]
  - Unevaluable event [Not Recovered/Not Resolved]
